FAERS Safety Report 8213390-9 (Version None)
Quarter: 2012Q1

REPORT INFORMATION
  Report Type: 
  Country: None (occurrence: None)
  Receive Date: 20120315
  Receipt Date: 20120308
  Transmission Date: 20120608
  Serious: Yes (Hospitalization)
  Sender: FDA-Public Use
  Company Number: BE-ROCHE-1019757

PATIENT
  Age: 74 Year
  Sex: Female

DRUGS (8)
  1. ALDACTONE [Concomitant]
     Dates: start: 20111117
  2. VEMURAFENIB [Suspect]
     Indication: METASTATIC MALIGNANT MELANOMA
     Dosage: DATE OF LAST DOSE PRIOR TO SAE: 01 DEC 2011
     Route: 048
     Dates: start: 20111109, end: 20111123
  3. ACENOCOUMAROL [Interacting]
     Indication: PRODUCT USED FOR UNKNOWN INDICATION
     Dates: start: 20020401, end: 20111123
  4. LASIX [Concomitant]
     Dates: start: 20110301
  5. CITALOPRAM HYDROBROMIDE [Concomitant]
     Dates: start: 20000101
  6. VEMURAFENIB [Interacting]
     Route: 048
     Dates: start: 20111130, end: 20111202
  7. PANTOPRAZOLE [Concomitant]
     Dates: start: 20090801
  8. VEMURAFENIB [Interacting]
     Dates: start: 20111206

REACTIONS (2)
  - OVERDOSE [None]
  - FALL [None]
